FAERS Safety Report 6903495-4 (Version None)
Quarter: 2010Q3

REPORT INFORMATION
  Report Type: 
  Country: None (occurrence: None)
  Receive Date: 20100803
  Receipt Date: 20081014
  Transmission Date: 20110219
  Serious: No
  Sender: FDA-Public Use
  Company Number: US-PFIZER INC-2008086102

PATIENT
  Sex: Female
  Weight: 52.62 kg

DRUGS (1)
  1. LYRICA [Suspect]

REACTIONS (1)
  - DIZZINESS [None]
